FAERS Safety Report 7422862-6 (Version None)
Quarter: 2011Q2

REPORT INFORMATION
  Report Type: 
  Country: None (occurrence: None)
  Receive Date: 20110419
  Receipt Date: 20101129
  Transmission Date: 20111010
  Serious: Yes (Death, Life-Threatening)
  Sender: FDA-Public Use
  Company Number: JP-BAYER-200914855BYL

PATIENT
  Age: 80 Year
  Sex: Male
  Weight: 58 kg

DRUGS (9)
  1. JUVELA [Concomitant]
     Indication: PALMAR-PLANTAR ERYTHRODYSAESTHESIA SYNDROME
     Route: 061
     Dates: start: 20091120, end: 20100215
  2. GASCON [Concomitant]
     Dosage: 120 MG (DAILY DOSE), , ORAL
     Route: 048
     Dates: end: 20100215
  3. PANCREAZE [Concomitant]
     Route: 048
     Dates: end: 20100215
  4. NEXAVAR [Suspect]
     Indication: HEPATIC NEOPLASM MALIGNANT
     Dosage: 800 MG (DAILY DOSE), BID, ORAL
     Route: 048
     Dates: start: 20091120, end: 20091207
  5. TAKEPRON [Concomitant]
     Dosage: 15 MG (DAILY DOSE), , ORAL
     Route: 048
     Dates: end: 20100215
  6. ARICEPT [Concomitant]
     Indication: DEMENTIA ALZHEIMER'S TYPE
     Dosage: 5 MG (DAILY DOSE), , ORAL
     Route: 048
     Dates: start: 20080422, end: 20100215
  7. URSO 250 [Concomitant]
     Dosage: 300 MG (DAILY DOSE), , ORAL
     Route: 048
     Dates: end: 20100215
  8. ALDACTONE [Concomitant]
     Indication: HEPATIC CIRRHOSIS
     Dosage: 25 MG (DAILY DOSE), , ORAL
     Route: 048
     Dates: end: 20100215
  9. GLYCYRON [Concomitant]
     Dosage: 75 MG (DAILY DOSE), , ORAL
     Route: 048
     Dates: end: 20100215

REACTIONS (4)
  - DECREASED APPETITE [None]
  - CEREBRAL INFARCTION [None]
  - HEPATIC NEOPLASM MALIGNANT [None]
  - CHEST DISCOMFORT [None]
